FAERS Safety Report 8856004 (Version 1)
Quarter: 2012Q4

REPORT INFORMATION
  Report Type: Spontaneous
  Country: US (occurrence: None)
  Receive Date: 20121022
  Receipt Date: 20121022
  Transmission Date: 20130627
  Serious: No
  Sender: FDA-Public Use
  Company Number: None

PATIENT
  Age: 40 Year
  Sex: Female
  Weight: 106.6 kg

DRUGS (1)
  1. PERCOCET [Suspect]
     Indication: CHRONIC PANCREATITIS
     Dosage: 1 tablet, Every 8 hours, po
     Route: 048

REACTIONS (1)
  - Euphoric mood [None]
